FAERS Safety Report 7686628-4 (Version None)
Quarter: 2011Q3

REPORT INFORMATION
  Report Type: 
  Country: None (occurrence: None)
  Receive Date: 20110816
  Receipt Date: 20110816
  Transmission Date: 20111222
  Serious: Yes (Hospitalization)
  Sender: FDA-Public Use
  Company Number: None

PATIENT
  Sex: Male
  Weight: 78.7 kg

DRUGS (2)
  1. VORICONAZOLE [Concomitant]
     Dosage: 300 MG
     Route: 042
     Dates: start: 20110429, end: 20110504
  2. TOBRAMYCIN [Suspect]
     Dosage: 300 MG
     Route: 045
     Dates: start: 20110428, end: 20110505

REACTIONS (2)
  - HAEMODIALYSIS [None]
  - RENAL FAILURE [None]
